FAERS Safety Report 6096467-6 (Version None)
Quarter: 2009Q1

REPORT INFORMATION
  Report Type: 
  Country: None (occurrence: None)
  Receive Date: 20090227
  Receipt Date: 20090127
  Transmission Date: 20090719
  Serious: No
  Sender: FDA-Public Use
  Company Number: US-BAYER-200912010NA

PATIENT
  Age: 45 Year
  Sex: Male

DRUGS (1)
  1. LEVITRA [Suspect]
     Indication: ERECTILE DYSFUNCTION
     Dosage: UNIT DOSE: 20 MG
     Dates: start: 20080501

REACTIONS (1)
  - ERECTILE DYSFUNCTION [None]
